FAERS Safety Report 7986914-4 (Version None)
Quarter: 2011Q4

REPORT INFORMATION
  Report Type: 
  Country: None (occurrence: None)
  Receive Date: 20111216
  Receipt Date: 20110906
  Transmission Date: 20120403
  Serious: No
  Sender: FDA-Public Use
  Company Number: US-BRISTOL-MYERS SQUIBB COMPANY-16033995

PATIENT
  Age: 11 Year
  Sex: Male

DRUGS (3)
  1. ABILIFY [Suspect]
     Dates: start: 20100901
  2. COGENTIN [Concomitant]
     Dosage: HALF DOSE ON MORNINGS + HALF DOSE ON NIGHT
  3. BENADRYL [Concomitant]

REACTIONS (2)
  - GAIT DISTURBANCE [None]
  - EXTRAPYRAMIDAL DISORDER [None]
